FAERS Safety Report 5307043-4 (Version None)
Quarter: 2007Q2

REPORT INFORMATION
  Report Type: 
  Country: None (occurrence: None)
  Receive Date: 20070425
  Receipt Date: 20070418
  Transmission Date: 20071010
  Serious: Yes (Other)
  Sender: FDA-Public Use
  Company Number: JP-ROCHE-493699

PATIENT
  Sex: Male

DRUGS (2)
  1. ANEXATE TAB [Suspect]
     Indication: ENDOSCOPY
     Route: 042
  2. SILECE [Concomitant]
     Indication: ENDOSCOPY

REACTIONS (1)
  - SHOCK [None]
